FAERS Safety Report 7688835-3 (Version None)
Quarter: 2011Q3

REPORT INFORMATION
  Report Type: 
  Country: None (occurrence: None)
  Receive Date: 20110817
  Receipt Date: 20110809
  Transmission Date: 20111222
  Serious: Yes (Death, Hospitalization)
  Sender: FDA-Public Use
  Company Number: PHHY2011TR72126

PATIENT
  Age: 5 Hour
  Sex: Female
  Weight: 3.1 kg

DRUGS (1)
  1. METHERGINE [Suspect]
     Dosage: 0.2 MG, UNK
     Route: 030

REACTIONS (4)
  - IRRITABILITY [None]
  - SEPSIS [None]
  - CLONIC CONVULSION [None]
  - WRONG DRUG ADMINISTERED [None]
